FAERS Safety Report 19233048 (Version 1)
Quarter: 2021Q2

REPORT INFORMATION
  Report Type: Spontaneous
  Country: ES (occurrence: ES)
  Receive Date: 20210507
  Receipt Date: 20210507
  Transmission Date: 20210717
  Serious: Yes (Other)
  Sender: FDA-Public Use
  Company Number: ES-TEVA-2021-ES-1908259

PATIENT
  Sex: Female

DRUGS (1)
  1. NAPROXENO [NAPROXEN] [Suspect]
     Active Substance: NAPROXEN
     Route: 048

REACTIONS (1)
  - Allergic reaction to excipient [Unknown]
